FAERS Safety Report 26026170 (Version 1)
Quarter: 2025Q4

REPORT INFORMATION
  Report Type: Spontaneous
  Country: US (occurrence: None)
  Receive Date: 20251110
  Receipt Date: 20251110
  Transmission Date: 20260117
  Serious: Yes (Hospitalization, Disabling)
  Sender: FDA-CTU
  Company Number: None

PATIENT
  Age: 40 Year
  Sex: Female
  Weight: 49.5 kg

DRUGS (2)
  1. BOTOX [Suspect]
     Active Substance: ONABOTULINUMTOXINA
     Route: 030
  2. DYSPORT [Suspect]
     Active Substance: ABOBOTULINUMTOXINA

REACTIONS (18)
  - Product use in unapproved indication [None]
  - Off label use [None]
  - Malaise [None]
  - Dyspnoea [None]
  - Loss of personal independence in daily activities [None]
  - Respiratory disorder [None]
  - Gait disturbance [None]
  - General physical health deterioration [None]
  - Pallor [None]
  - Weight decreased [None]
  - Palpitations [None]
  - Muscular weakness [None]
  - Fatigue [None]
  - Fall [None]
  - Bedridden [None]
  - Skin burning sensation [None]
  - Musculoskeletal pain [None]
  - Asthenia [None]

NARRATIVE: CASE EVENT DATE: 20230615
